FAERS Safety Report 9548726 (Version 1)
Quarter: 2013Q3

REPORT INFORMATION
  Report Type: Spontaneous
  Country: US (occurrence: None)
  Receive Date: 20130923
  Receipt Date: 20130923
  Transmission Date: 20140515
  Serious: Yes (Disabling)
  Sender: FDA-Public Use
  Company Number: None

PATIENT
  Age: 20 Year
  Sex: Female
  Weight: 51.71 kg

DRUGS (1)
  1. FLAGYL [Suspect]
     Indication: BACTERIAL VAGINOSIS
     Dates: start: 20130911, end: 20130918

REACTIONS (5)
  - Dry throat [None]
  - Dysphagia [None]
  - Increased upper airway secretion [None]
  - Haematemesis [None]
  - Drug hypersensitivity [None]
